FAERS Safety Report 25518409 (Version 1)
Quarter: 2025Q3

REPORT INFORMATION
  Report Type: Report from Study
  Country: EU (occurrence: EU)
  Receive Date: 20250704
  Receipt Date: 20250704
  Transmission Date: 20251021
  Serious: Yes (Life-Threatening, Hospitalization)
  Sender: BOEHRINGER INGELHEIM
  Company Number: EU-ROCHE-10000318354

PATIENT

DRUGS (3)
  1. NINTEDANIB [Suspect]
     Active Substance: NINTEDANIB
     Indication: Neoplasm malignant
     Dosage: DATE OF MOST RECENT DOSE OF CANCER TREATMENT PRIOR TO AE/SAE ONSET: 05-JUN-2025
     Route: 048
     Dates: start: 20250328
  2. NAPROXEN [Suspect]
     Active Substance: NAPROXEN
     Indication: Neoplasm malignant
  3. DOCETAXEL [Suspect]
     Active Substance: DOCETAXEL
     Indication: Neoplasm malignant
     Dosage: DATE OF MOST RECENT DOSE OF CANCER TREATMENT PRIOR TO AE/SAE ONSET :20/MAR/2025
     Route: 042
     Dates: start: 20250327

REACTIONS (1)
  - Duodenal ulcer [Recovered/Resolved]

NARRATIVE: CASE EVENT DATE: 20250608
